FAERS Safety Report 19881701 (Version 2)
Quarter: 2021Q4

REPORT INFORMATION
  Report Type: Spontaneous
  Country: NL (occurrence: NL)
  Receive Date: 20210924
  Receipt Date: 20211001
  Transmission Date: 20220303
  Serious: Yes (Hospitalization)
  Sender: FDA-Public Use
  Company Number: None

PATIENT
  Age: 70 Year
  Sex: Male
  Weight: 79 kg

DRUGS (7)
  1. EZETIMIBE\SIMVASTATIN [Interacting]
     Active Substance: EZETIMIBE\SIMVASTATIN
     Dosage: 10/20 MG (MILLIGRAMS):THERAPY START DATE :THERAPY END DATE:ASKU
  2. CRIZOTINIB [Interacting]
     Active Substance: CRIZOTINIB
     Indication: Non-small cell lung cancer
     Dosage: 500 MILLIGRAM DAILY; 2X A DAY 1
     Dates: start: 20210527, end: 20210707
  3. OMEPRAZOL CAPSULE MSR 20MG / MAAGZUURREMMER OMEPRAZOL CF CAPSULE MSR 2 [Concomitant]
     Dosage: 20 MG (MILLIGRAM):THERAPY START DATE:THERAPY END DATE :ASKU
  4. VITAMINE B COMPLEX TABLET (PCH) / Brand name not specified [Concomitant]
     Dosage: THERAPY START DATE :THERAPY END DATE:ASKU
  5. MACROGOL/ZOUTEN PDR V DRANK (MOVIC/MOLAX/LAXT/GEN) / Brand name not sp [Concomitant]
     Dosage: POWDER FOR DRINK:SALTS PDR V BEVERAGE:THERAPY START DATE:THERAPY END DATE :ASKU
  6. PROPRANOLOL TABLET 10MG / Brand name not specified [Concomitant]
     Dosage: 10 MG (MILLIGRAM)THERAPY START DATE:THERAPY END DATE :ASKU
  7. ASCORBINEZUUR TABLET 500MG / Brand name not specified [Concomitant]
     Dosage: 1000MGTHERAPY START DATE:THERAPY END DATE:ASKU

REACTIONS (2)
  - Rhabdomyolysis [Recovered/Resolved]
  - Drug interaction [Recovered/Resolved]

NARRATIVE: CASE EVENT DATE: 20210707
